FAERS Safety Report 5034778-3 (Version None)
Quarter: 2006Q2

REPORT INFORMATION
  Report Type: 
  Country: None (occurrence: None)
  Receive Date: 20060509
  Receipt Date: 20060126
  Transmission Date: 20061013
  Serious: Yes (Other)
  Sender: FDA-Public Use
  Company Number: US200601004832

PATIENT
  Age: 49 Year
  Sex: Female

DRUGS (5)
  1. CYMBALTA [Suspect]
     Indication: DEPRESSION
     Dosage: 30 MG
     Dates: start: 20060114, end: 20060124
  2. PROZAC [Suspect]
     Indication: DEPRESSION
  3. ESZOPICLONE (ESZOPICLONE) [Concomitant]
  4. ZOMIG [Concomitant]
  5. NEXIUM [Concomitant]

REACTIONS (2)
  - CHEST PAIN [None]
  - HEART RATE INCREASED [None]
